FAERS Safety Report 8991034 (Version 1)
Quarter: 2012Q4

REPORT INFORMATION
  Report Type: Spontaneous
  Country: IT (occurrence: None)
  Receive Date: 20121221
  Receipt Date: 20121221
  Transmission Date: 20130627
  Serious: Yes (Hospitalization)
  Sender: FDA-Public Use
  Company Number: AUR-APL-2012-05442

PATIENT
  Age: 20 Year
  Sex: Male

DRUGS (2)
  1. AMOXICILLIN (AMOXICILLIN) [Suspect]
     Indication: DRUG USE FOR UNKNOWN INDICATION
  2. ASPIRIN (ACETYLSALICYLIC ACID) [Concomitant]

REACTIONS (4)
  - Rash maculo-papular [None]
  - Aspartate aminotransferase increased [None]
  - Infectious mononucleosis [None]
  - Alanine aminotransferase increased [None]
